FAERS Safety Report 20628990 (Version 2)
Quarter: 2022Q2

REPORT INFORMATION
  Report Type: Spontaneous
  Country: DK (occurrence: DK)
  Receive Date: 20220323
  Receipt Date: 20220412
  Transmission Date: 20220720
  Serious: Yes (Hospitalization)
  Sender: FDA-Public Use
  Company Number: None

PATIENT
  Age: 74 Year
  Sex: Male

DRUGS (9)
  1. SCOPOLAMINE [Suspect]
     Active Substance: SCOPOLAMINE
     Indication: Dizziness
     Dosage: 1 MG (STRENGTH: 1 MG/72HOURSDOSAGE: 1 MG/72HOURS )
     Route: 003
     Dates: start: 20210524
  2. ATROPINE [Suspect]
     Active Substance: ATROPINE
     Indication: Salivary hypersecretion
     Dosage: 6 GTT, QD (STRENGTH: 1%)
     Route: 048
     Dates: start: 20210524, end: 20220204
  3. ATROPINE [Suspect]
     Active Substance: ATROPINE
     Route: 048
  4. RILUZOLE [Concomitant]
     Active Substance: RILUZOLE
     Indication: Amyotrophic lateral sclerosis
     Dosage: UNK
     Route: 065
     Dates: start: 20210628
  5. XARELTO [Concomitant]
     Active Substance: RIVAROXABAN
     Indication: Anticoagulant therapy
     Dosage: UNK
     Route: 065
     Dates: start: 20190326
  6. IBUPROFEN [Concomitant]
     Active Substance: IBUPROFEN
     Indication: Pain
     Dosage: UNK
     Route: 065
     Dates: start: 20210521
  7. POTASSIUM CHLORIDE [Concomitant]
     Active Substance: POTASSIUM CHLORIDE
     Indication: Blood potassium decreased
     Dosage: UNK
     Route: 065
     Dates: start: 20210601
  8. THIAMINE [Concomitant]
     Active Substance: THIAMINE
     Indication: Vitamin supplementation
     Dosage: UNK
     Route: 065
     Dates: start: 20210527
  9. ACETAMINOPHEN [Concomitant]
     Active Substance: ACETAMINOPHEN
     Indication: Pain
     Dosage: UNK
     Route: 065
     Dates: start: 20210521

REACTIONS (2)
  - Toxicity to various agents [Recovered/Resolved]
  - Confusional state [Recovered/Resolved]

NARRATIVE: CASE EVENT DATE: 20210724
